FAERS Safety Report 8102851-9 (Version None)
Quarter: 2012Q1

REPORT INFORMATION
  Report Type: 
  Country: None (occurrence: None)
  Receive Date: 20120127
  Receipt Date: 20120116
  Transmission Date: 20120608
  Serious: Yes (Hospitalization)
  Sender: FDA-Public Use
  Company Number: DSA_48918_2012

PATIENT
  Sex: Male

DRUGS (6)
  1. INVEGA [Suspect]
     Indication: PRODUCT USED FOR UNKNOWN INDICATION
     Dosage: 6-9 MG DAILY ORAL
     Route: 048
     Dates: start: 20100601, end: 20101103
  2. CLOZAPINE [Suspect]
     Indication: PRODUCT USED FOR UNKNOWN INDICATION
     Dosage: 12.5-25 MG DAILY ORAL
     Route: 048
     Dates: start: 20101104, end: 20101112
  3. BUPROPION HYDROCHLORIDE [Suspect]
     Indication: DEPRESSIVE SYMPTOM
     Dosage: (300 MG QD (ORAL) , (150 MG QD ORAL), (150 MG QD ORAL)
     Route: 048
     Dates: start: 20111116
  4. BUPROPION HYDROCHLORIDE [Suspect]
     Indication: DEPRESSIVE SYMPTOM
     Dosage: (300 MG QD (ORAL) , (150 MG QD ORAL), (150 MG QD ORAL)
     Route: 048
     Dates: start: 20101027, end: 20101115
  5. BUPROPION HYDROCHLORIDE [Suspect]
     Indication: DEPRESSIVE SYMPTOM
     Dosage: (300 MG QD (ORAL) , (150 MG QD ORAL), (150 MG QD ORAL)
     Route: 048
     Dates: start: 20101019, end: 20101026
  6. FLUVOXAMINE MALEATE [Suspect]
     Indication: PRODUCT USED FOR UNKNOWN INDICATION
     Dosage: 50 MG QD
     Dates: start: 20101104, end: 20101108

REACTIONS (4)
  - DRUG INTERACTION [None]
  - WEIGHT INCREASED [None]
  - GRAND MAL CONVULSION [None]
  - FALL [None]
